FAERS Safety Report 7491241-8 (Version None)
Quarter: 2011Q2

REPORT INFORMATION
  Report Type: 
  Country: None (occurrence: None)
  Receive Date: 20110519
  Receipt Date: 20110509
  Transmission Date: 20111010
  Serious: Yes (Hospitalization)
  Sender: FDA-Public Use
  Company Number: A0856517A

PATIENT
  Age: 44 Year
  Sex: Female
  Weight: 102 kg

DRUGS (3)
  1. DOCETAXEL [Suspect]
     Indication: BREAST CANCER
     Dosage: 75MGM2 EVERY 3 WEEKS
     Route: 042
     Dates: start: 20091021, end: 20091223
  2. PREDNISONE [Concomitant]
  3. LAPATINIB [Suspect]
     Indication: BREAST CANCER
     Dosage: 750MG PER DAY
     Route: 048
     Dates: start: 20091021

REACTIONS (5)
  - CHOLECYSTITIS [None]
  - REFLUX GASTRITIS [None]
  - COLITIS [None]
  - DEHYDRATION [None]
  - ABDOMINAL PAIN [None]
